FAERS Safety Report 6710201-5 (Version None)
Quarter: 2010Q2

REPORT INFORMATION
  Report Type: 
  Country: None (occurrence: None)
  Receive Date: 20100430
  Receipt Date: 20100423
  Transmission Date: 20101027
  Serious: Yes (Other)
  Sender: FDA-Public Use
  Company Number: 2010SP015665

PATIENT
  Age: 36 Year
  Sex: Female

DRUGS (2)
  1. SAPHRIS [Suspect]
     Indication: BIPOLAR DISORDER
     Dosage: 5 MG; BID; SL
     Route: 060
  2. SAPHRIS [Suspect]
     Indication: SUICIDAL IDEATION
     Dosage: 5 MG; BID; SL
     Route: 060

REACTIONS (1)
  - HYPOAESTHESIA ORAL [None]
